FAERS Safety Report 14123142 (Version 1)
Quarter: 2017Q4

REPORT INFORMATION
  Report Type: Spontaneous
  Country: AR (occurrence: AR)
  Receive Date: 20171025
  Receipt Date: 20171025
  Transmission Date: 20180321
  Serious: Yes (Death, Hospitalization, Other)
  Sender: FDA-Public Use
  Company Number: AR-GILEAD-2017-0300573

PATIENT
  Sex: Female

DRUGS (4)
  1. AMBRISENTAN [Suspect]
     Active Substance: AMBRISENTAN
     Indication: PULMONARY ARTERIAL HYPERTENSION
     Dosage: UNK
     Route: 065
  2. SELEXIPAG [Concomitant]
     Active Substance: SELEXIPAG
  3. SILDENAFIL. [Concomitant]
     Active Substance: SILDENAFIL
  4. ACENOCUMAROL [Concomitant]
     Active Substance: ACENOCOUMAROL

REACTIONS (8)
  - Abdominal pain upper [Unknown]
  - Cholecystitis acute [Unknown]
  - Pulmonary embolism [Fatal]
  - Cyanosis [Unknown]
  - Loss of consciousness [Unknown]
  - Dyspnoea [Unknown]
  - Biliary dilatation [Unknown]
  - Cholelithiasis [Unknown]

NARRATIVE: CASE EVENT DATE: 20170811
